FAERS Safety Report 19645274 (Version 1)
Quarter: 2021Q3

REPORT INFORMATION
  Report Type: Spontaneous
  Country: CN (occurrence: CN)
  Receive Date: 20210802
  Receipt Date: 20210802
  Transmission Date: 20211014
  Serious: Yes (Other)
  Sender: FDA-Public Use
  Company Number: CN-ROCHE-2877791

PATIENT
  Age: 64 Year
  Sex: Female

DRUGS (12)
  1. PACLITAXEL. [Concomitant]
     Active Substance: PACLITAXEL
     Indication: BREAST CANCER
     Dosage: PACLITAXEL AND CYCLOPHOSPHAMIDE
     Dates: start: 20190726, end: 20191028
  2. PACLITAXEL. [Concomitant]
     Active Substance: PACLITAXEL
     Dosage: PACLITAXEL AND TRASTUZUMAB
     Dates: start: 20200214, end: 20200425
  3. GEMCITABINE. [Concomitant]
     Active Substance: GEMCITABINE
     Indication: BREAST CANCER
     Dosage: GEMCITABINE, CISPLATIN
     Dates: start: 20180312
  4. LOBAPLATIN [Concomitant]
     Active Substance: LOBAPLATIN
     Indication: BREAST CANCER
     Dosage: VINORELBINE AND LOBAPLATIN
     Dates: start: 20200525, end: 20201010
  5. XELODA [Suspect]
     Active Substance: CAPECITABINE
     Indication: BREAST CANCER
     Dosage: DOCETAXEL +DOCETAXEL
     Route: 048
     Dates: start: 20170511
  6. DOCETAXEL. [Concomitant]
     Active Substance: DOCETAXEL
     Indication: BREAST CANCER
     Dosage: DOCETAXEL +DOCETAXEL
     Dates: start: 20170511, end: 20170926
  7. CISPLATIN. [Concomitant]
     Active Substance: CISPLATIN
     Indication: BREAST CANCER
     Dosage: GEMCITABINE, CISPLATIN
     Dates: start: 20180312
  8. VINORELBINE [Concomitant]
     Active Substance: VINORELBINE TARTRATE
     Indication: BREAST CANCER
     Dosage: VINORELBINE AND LOBAPLATIN
     Dates: start: 20200525, end: 20201010
  9. HERCEPTIN [Suspect]
     Active Substance: TRASTUZUMAB
     Dosage: PACLITAXEL AND TRASTUZUMAB
     Route: 065
     Dates: start: 20200214
  10. CYCLOPHOSPHAMIDE. [Concomitant]
     Active Substance: CYCLOPHOSPHAMIDE
     Indication: BREAST CANCER
     Dosage: PACLITAXEL AND CYCLOPHOSPHAMIDE
     Dates: start: 20190726, end: 20191028
  11. HERCEPTIN [Suspect]
     Active Substance: TRASTUZUMAB
     Indication: BREAST CANCER
     Route: 065
     Dates: start: 20190613, end: 20190704
  12. LETROZOLE. [Concomitant]
     Active Substance: LETROZOLE

REACTIONS (1)
  - Myelosuppression [Unknown]
